FAERS Safety Report 24227111 (Version 1)
Quarter: 2024Q3

REPORT INFORMATION
  Report Type: Spontaneous
  Country: CA (occurrence: CA)
  Receive Date: 20240820
  Receipt Date: 20240820
  Transmission Date: 20241017
  Serious: Yes (Hospitalization)
  Sender: ACCORD
  Company Number: None

PATIENT
  Age: 74 Year
  Sex: Female
  Weight: 67 kg

DRUGS (14)
  1. FLUOROURACIL [Suspect]
     Active Substance: FLUOROURACIL
     Indication: Colorectal cancer
  2. OXALIPLATIN [Suspect]
     Active Substance: OXALIPLATIN
     Indication: Colorectal cancer
  3. LEUCOVORIN [Suspect]
     Active Substance: LEUCOVORIN\LEUCOVORIN CALCIUM
     Indication: Colorectal cancer
     Dosage: FOLINIC ACID, 00566702
  4. ATORVASTATIN [Concomitant]
     Active Substance: ATORVASTATIN
     Route: 065
  5. BETAMETHASONE VALERATE [Concomitant]
     Active Substance: BETAMETHASONE VALERATE
  6. DEXAMETHASONE [Concomitant]
     Active Substance: DEXAMETHASONE
     Route: 065
  7. EZETIMIBE [Concomitant]
     Active Substance: EZETIMIBE
  8. FAMOTIDINE [Concomitant]
     Active Substance: FAMOTIDINE
  9. GLICLAZIDE [Concomitant]
     Active Substance: GLICLAZIDE
  10. INSULIN NOS [Concomitant]
     Active Substance: INSULIN NOS
  11. LOPERAMIDE [Concomitant]
     Active Substance: LOPERAMIDE
  12. POTASSIUM [Concomitant]
     Active Substance: POTASSIUM
  13. PROCHLORPERAZINE [Concomitant]
     Active Substance: PROCHLORPERAZINE
  14. LINAGLIPTIN [Concomitant]
     Active Substance: LINAGLIPTIN
     Dosage: TRAJENTA

REACTIONS (2)
  - Bacterial translocation [Recovered/Resolved]
  - Febrile neutropenia [Recovered/Resolved]
